FAERS Safety Report 5464673-7 (Version None)
Quarter: 2007Q3

REPORT INFORMATION
  Report Type: 
  Country: None (occurrence: None)
  Receive Date: 20070820
  Receipt Date: 20070519
  Transmission Date: 20080115
  Serious: No
  Sender: FDA-Public Use
  Company Number: WAES 0705USA03803

PATIENT
  Age: 58 Year
  Sex: Female

DRUGS (2)
  1. JANUVIA [Suspect]
     Dosage: 100 MG/PO
     Route: 048
     Dates: start: 20070401, end: 20070101
  2. INSULIN [Concomitant]

REACTIONS (3)
  - NAUSEA [None]
  - RASH [None]
  - VOMITING [None]
